FAERS Safety Report 19504620 (Version 1)
Quarter: 2021Q3

REPORT INFORMATION
  Report Type: Report from Study
  Country: US (occurrence: US)
  Receive Date: 20210707
  Receipt Date: 20210707
  Transmission Date: 20211014
  Serious: Yes (Other)
  Sender: FDA-Public Use
  Company Number: US-EMD SERONO-9250378

PATIENT
  Age: 65 Year
  Sex: Female

DRUGS (2)
  1. MAVENCLAD [Suspect]
     Active Substance: CLADRIBINE
     Dosage: YEAR TWO THERAPY
     Dates: end: 202101
  2. MAVENCLAD [Suspect]
     Active Substance: CLADRIBINE
     Indication: MULTIPLE SCLEROSIS
     Dosage: YEAR ONE THERAPY
     Dates: start: 20200116

REACTIONS (3)
  - Thyroid hormones decreased [Recovering/Resolving]
  - Benign neoplasm of adrenal gland [Unknown]
  - Benign renal neoplasm [Unknown]

NARRATIVE: CASE EVENT DATE: 2021
